FAERS Safety Report 11086574 (Version 1)
Quarter: 2015Q2

REPORT INFORMATION
  Report Type: Report from Study
  Country: US (occurrence: US)
  Receive Date: 20150504
  Receipt Date: 20150504
  Transmission Date: 20150821
  Serious: Yes (Other)
  Sender: FDA-Public Use
  Company Number: US-ROCHE-1565954

PATIENT
  Age: 10 Year
  Sex: Male

DRUGS (2)
  1. NUTROPIN AQ [Suspect]
     Active Substance: SOMATROPIN
     Indication: DWARFISM
     Dosage: FOR ONE NIGHT
     Route: 058
     Dates: start: 20150407, end: 20150414
  2. NUTROPIN AQ [Suspect]
     Active Substance: SOMATROPIN
     Dosage: FOR ONE NIGHT
     Route: 058
     Dates: start: 20150428

REACTIONS (8)
  - Sleep terror [Recovered/Resolved]
  - Hallucination [Recovered/Resolved]
  - Product quality issue [Unknown]
  - Fear [Recovered/Resolved]
  - Panic attack [Recovered/Resolved]
  - Somnambulism [Recovered/Resolved]
  - Sleep talking [Recovered/Resolved]
  - Anxiety [Recovered/Resolved]

NARRATIVE: CASE EVENT DATE: 20150407
